FAERS Safety Report 8488115-2 (Version None)
Quarter: 2012Q3

REPORT INFORMATION
  Report Type: 
  Country: None (occurrence: None)
  Receive Date: 20120705
  Receipt Date: 20120628
  Transmission Date: 20120928
  Serious: Yes (Hospitalization, Disabling)
  Sender: FDA-Public Use
  Company Number: US-BAYER-2012-062901

PATIENT
  Age: 18 Year
  Sex: Female

DRUGS (6)
  1. YASMIN [Suspect]
     Indication: MENSTRUAL CYCLE MANAGEMENT
     Dosage: UNK
     Dates: start: 20050101
  2. YAZ [Suspect]
     Dosage: UNK
  3. FLUOXETINE [Concomitant]
     Dosage: 90 MG, UNK
  4. TRAZODONE HCL [Concomitant]
     Dosage: 100 MG, UNK
  5. YASMIN [Suspect]
     Indication: CONTRACEPTION
  6. DROSPIRENONE AND ETHINYL ESTRADIOL [Suspect]
     Dosage: UNK
     Dates: start: 20050101

REACTIONS (6)
  - PULMONARY EMBOLISM [None]
  - PAIN [None]
  - DEFORMITY [None]
  - ANHEDONIA [None]
  - INJURY [None]
  - ANXIETY [None]
